FAERS Safety Report 6443258-X (Version None)
Quarter: 2009Q4

REPORT INFORMATION
  Report Type: 
  Country: None (occurrence: None)
  Receive Date: 20091117
  Receipt Date: 20091110
  Transmission Date: 20100525
  Serious: Yes (Other)
  Sender: FDA-Public Use
  Company Number: GXKR2009US12340

PATIENT
  Age: 16 Year
  Sex: Male

DRUGS (35)
  1. RISPERIDONE (NGX) [Suspect]
     Indication: TOURETTE'S DISORDER
     Dosage: 5 MG/DAY
     Route: 065
  2. RISPERDONE [Suspect]
     Dosage: 0.5 MG/DAY
     Route: 065
  3. RISPERDONE [Suspect]
     Dosage: 5 MG/DAY
     Route: 048
  4. RISPERDONE [Suspect]
     Dosage: 2 MG/DAY
     Route: 065
  5. RISPERDONE [Suspect]
     Dosage: 1 MG/DAY
     Route: 065
  6. RISPERDONE [Suspect]
     Dosage: 1 MG, BID
  7. RISPERDONE [Suspect]
     Dosage: 2 MG/DAY
     Route: 065
  8. RISPERIDONE (NGX) [Suspect]
     Dosage: 1 MG, BID
     Route: 065
  9. HALOPERIDOL (NGX) [Suspect]
     Indication: TOURETTE'S DISORDER
     Route: 065
  10. FLUOXETINE [Interacting]
     Indication: ANXIETY
     Dosage: GRADUALLY INCREASED TO 30 MG/DAY
     Route: 048
  11. FLUOXETINE [Interacting]
     Indication: DEPRESSION
     Dosage: 40 MG/DAY
     Route: 048
  12. FLUOXETINE [Interacting]
     Dosage: 50 MG/DAY
     Route: 048
  13. FLUOXETINE [Interacting]
     Dosage: 40 MG/DAY
     Route: 048
  14. TETRABENAZINE [Suspect]
     Indication: TOURETTE'S DISORDER
     Dosage: MAXIMUM DOSE: 37.5 MG, BID
     Route: 065
  15. TETRABENAZINE [Suspect]
     Dosage: 12.5 MG/DAY
     Route: 065
  16. PIMOZIDE [Interacting]
     Indication: TOURETTE'S DISORDER
     Dosage: GRADUALLY INCREASED TO 3MG DAILY IN 1 MG INCREMENTS PER WEEK
     Route: 065
  17. BENZTROPEINE [Concomitant]
     Dosage: 0.5 MG, BID
  18. FLUPHENAZINE [Concomitant]
     Dosage: GRADUALLY INCREASED TO 3 MG/DAY
     Route: 048
  19. FLUPHENAZINE [Concomitant]
     Dosage: 4 MG/DAY
     Route: 048
  20. FLUPHENAZINE [Concomitant]
     Dosage: 2 MG IN THE MORNING, 3MG AT NIGHT
     Route: 048
  21. ZOLPIDEM [Concomitant]
     Dosage: 10 MG, Q12H
  22. ZOLPIDEM [Concomitant]
     Dosage: 10 MG/DAY
  23. ALPRAZOLAM [Concomitant]
     Dosage: 0.25 MG, BID
  24. MIDAZOLAM HCL [Concomitant]
     Route: 042
  25. DOCUSATE SODIUM [Concomitant]
     Dosage: 100 MG, Q12H
     Route: 048
  26. METHYLPREDNISOLONE 4MG TAB [Concomitant]
     Dosage: UNK
  27. RANITIDINE HYDROCHLORIDE [Concomitant]
     Dosage: 50 MG, Q8H
     Route: 042
  28. FISH OIL [Concomitant]
     Dosage: 1000 MG, BID
  29. TOPIRAMATE [Concomitant]
     Dosage: 50 MG, Q12H
  30. TOPIRAMATE [Concomitant]
     Dosage: 75 MG/DAY
  31. CLONAZEPAM [Concomitant]
     Dosage: 0.5 MG BID-TID
  32. CLONAZEPAM [Concomitant]
     Dosage: 0.5 MG/DAY
  33. DIPHENHYDRAMINE HCL [Concomitant]
     Route: 030
  34. DIAZEPAM [Concomitant]
     Route: 030
  35. LORAZEPAM [Concomitant]
     Route: 030

REACTIONS (10)
  - DRUG INTERACTION [None]
  - ELECTROCARDIOGRAM QT PROLONGED [None]
  - FEELING OF DESPAIR [None]
  - GALACTORRHOEA [None]
  - LETHARGY [None]
  - MAJOR DEPRESSION [None]
  - MUSCULOSKELETAL STIFFNESS [None]
  - SUICIDAL IDEATION [None]
  - TEARFULNESS [None]
  - WEIGHT INCREASED [None]
